FAERS Safety Report 16658007 (Version 2)
Quarter: 2019Q3

REPORT INFORMATION
  Report Type: Spontaneous
  Country: FR (occurrence: FR)
  Receive Date: 20190801
  Receipt Date: 20190819
  Transmission Date: 20191004
  Serious: Yes (Hospitalization, Other)
  Sender: FDA-Public Use
  Company Number: PHHY2019FR177271

PATIENT
  Age: 72 Year
  Sex: Male

DRUGS (6)
  1. DOXYCYCLINE MONOHYDRATE [Suspect]
     Active Substance: DOXYCYCLINE
     Indication: CARDIAC VALVE VEGETATION
     Dosage: UNK
     Route: 065
  2. GENTAMYCIN [Suspect]
     Active Substance: GENTAMICIN
     Indication: CARDIAC VALVE VEGETATION
     Dosage: UNK
     Route: 065
  3. DOXYCYCLINE MONOHYDRATE [Suspect]
     Active Substance: DOXYCYCLINE
     Indication: OFF LABEL USE
     Dosage: 200 MG, QD
     Route: 065
  4. AMOXICILLIN. [Suspect]
     Active Substance: AMOXICILLIN
     Indication: CARDIAC VALVE VEGETATION
     Dosage: UNK
     Route: 065
  5. AMOXICILLIN. [Suspect]
     Active Substance: AMOXICILLIN
     Dosage: 12 G, QD
     Route: 065
  6. GENTAMYCIN [Suspect]
     Active Substance: GENTAMICIN
     Dosage: 240 MG, QD
     Route: 065

REACTIONS (5)
  - Product use in unapproved indication [Unknown]
  - Embolic stroke [Unknown]
  - Brain abscess [Recovered/Resolved]
  - Cardiac valve fibroelastoma [Unknown]
  - Off label use [Unknown]
